FAERS Safety Report 4931311-9 (Version None)
Quarter: 2006Q1

REPORT INFORMATION
  Report Type: 
  Country: None (occurrence: None)
  Receive Date: 20060302
  Receipt Date: 20051031
  Transmission Date: 20060701
  Serious: Yes (Hospitalization, Other)
  Sender: FDA-Public Use
  Company Number: US-MERCK-0511USA00310

PATIENT
  Age: 73 Year
  Sex: Male
  Weight: 62 kg

DRUGS (11)
  1. VIOXX [Suspect]
     Indication: ARTHRITIS
     Route: 048
     Dates: start: 20000601, end: 20021101
  2. ENDOCET [Concomitant]
     Indication: PAIN
     Route: 065
     Dates: start: 19980516
  3. BACLOFEN [Concomitant]
     Indication: PAIN
     Route: 065
     Dates: start: 19980516
  4. PROPACET 100 [Concomitant]
     Indication: PAIN
     Route: 065
     Dates: start: 19980707
  5. CODEINE [Concomitant]
     Indication: PAIN
     Route: 065
     Dates: start: 19980403, end: 20030101
  6. LORTAB [Concomitant]
     Indication: PAIN
     Route: 065
     Dates: start: 20000707
  7. TYLENOL (CAPLET) [Concomitant]
     Indication: ARTHRITIS
     Route: 065
  8. ULTRAM [Concomitant]
     Indication: PAIN
     Route: 065
     Dates: start: 19981012
  9. DAYPRO [Concomitant]
     Indication: PAIN
     Route: 065
     Dates: start: 19980707
  10. NITROSTAT [Concomitant]
     Route: 065
  11. IBUPROFEN [Concomitant]
     Indication: PAIN
     Route: 065
     Dates: start: 19971208

REACTIONS (13)
  - ABDOMINAL PAIN UPPER [None]
  - BACK PAIN [None]
  - CHEST PAIN [None]
  - CORONARY ARTERY DISEASE [None]
  - DYSPNOEA [None]
  - HAEMATOCHEZIA [None]
  - HEART RATE IRREGULAR [None]
  - HYPERTENSION [None]
  - HYPOKALAEMIA [None]
  - IRON DEFICIENCY [None]
  - MYOCARDIAL INFARCTION [None]
  - NAUSEA [None]
  - OEDEMA PERIPHERAL [None]
